FAERS Safety Report 5246949-1 (Version None)
Quarter: 2007Q1

REPORT INFORMATION
  Report Type: 
  Country: None (occurrence: None)
  Receive Date: 20070226
  Receipt Date: 20070213
  Transmission Date: 20070707
  Serious: Yes (Hospitalization, Other)
  Sender: FDA-Public Use
  Company Number: US-PFIZER INC-2006134592

PATIENT
  Sex: Female
  Weight: 63.5 kg

DRUGS (2)
  1. BEXTRA [Suspect]
     Indication: BACK PAIN
     Route: 048
  2. BEXTRA [Suspect]
     Indication: INFLAMMATION

REACTIONS (3)
  - AMNESIA [None]
  - CEREBROVASCULAR ACCIDENT [None]
  - DEPRESSION [None]
